FAERS Safety Report 21363150 (Version 1)
Quarter: 2022Q3

REPORT INFORMATION
  Report Type: Report from Study
  Country: US (occurrence: US)
  Receive Date: 20220922
  Receipt Date: 20220922
  Transmission Date: 20221027
  Serious: No
  Sender: FDA-Public Use
  Company Number: US-ABBVIE-4127911

PATIENT
  Sex: Female

DRUGS (1)
  1. HUMIRA [Suspect]
     Active Substance: ADALIMUMAB
     Indication: Hidradenitis
     Dosage: INJECT 1 PEN SUBCUTANEOLTSLY EVERY WEEK FOR 28?DAYS, CITRATE FREE
     Route: 058
     Dates: start: 2019, end: 2021

REACTIONS (1)
  - Maternal exposure during pregnancy [Unknown]
